FAERS Safety Report 21785022 (Version 1)
Quarter: 2022Q4

REPORT INFORMATION
  Report Type: Spontaneous
  Country: DK (occurrence: DK)
  Receive Date: 20221227
  Receipt Date: 20221227
  Transmission Date: 20230113
  Serious: Yes (Hospitalization, Other)
  Sender: FDA-Public Use
  Company Number: DK-LABORATORIOS LICONSA S.A.-2211DK05190

PATIENT
  Age: 74 Year
  Sex: Male
  Weight: 66.2 kg

DRUGS (3)
  1. RITUXIMAB [Suspect]
     Active Substance: RITUXIMAB
     Indication: Marginal zone lymphoma
     Dosage: 700 MG, MONTHLY
     Route: 042
     Dates: start: 20220817
  2. INVESTIGATIONAL PRODUCT [Suspect]
     Active Substance: INVESTIGATIONAL PRODUCT
     Indication: Marginal zone lymphoma
     Dosage: FREQ:2 WK;816 MG Q2W
     Route: 042
     Dates: start: 20220817
  3. LENALIDOMIDE [Suspect]
     Active Substance: LENALIDOMIDE
     Indication: Marginal zone lymphoma
     Dosage: 20 MG, 1X/DAY
     Route: 048
     Dates: start: 20220817, end: 20221118

REACTIONS (2)
  - Pneumonia [Recovering/Resolving]
  - Embolism [Recovered/Resolved]

NARRATIVE: CASE EVENT DATE: 20221105
